FAERS Safety Report 18943583 (Version 3)
Quarter: 2024Q1

REPORT INFORMATION
  Report Type: Other
  Country: JP (occurrence: None)
  Receive Date: 20210226
  Receipt Date: 20240229
  Transmission Date: 20240410
  Serious: Yes (Death, Other)
  Sender: FDA-Public Use
  Company Number: JP-ROCHE-2285735

PATIENT

DRUGS (5)
  1. RITUXIMAB [Suspect]
     Active Substance: RITUXIMAB
     Indication: Diffuse large B-cell lymphoma
     Dosage: ON DAY 1 IN R-CHOP GROUP ?ON DAYS 1, 8, 1 5, 22, 29, 36, 43 AND 50 IN RW-CHOP GROUP
     Route: 042
  2. CYCLOPHOSPHAMIDE [Suspect]
     Active Substance: CYCLOPHOSPHAMIDE
     Indication: Diffuse large B-cell lymphoma
     Dosage: ON DAY 1
     Route: 042
  3. DOXORUBICIN [Suspect]
     Active Substance: DOXORUBICIN
     Indication: Diffuse large B-cell lymphoma
     Dosage: ON DAY 1
     Route: 042
  4. VINCRISTINE [Suspect]
     Active Substance: VINCRISTINE
     Indication: Diffuse large B-cell lymphoma
     Dosage: ON DAY 1?MAX 2 MG
     Route: 042
  5. PREDNISONE [Suspect]
     Active Substance: PREDNISONE
     Indication: Diffuse large B-cell lymphoma
     Dosage: ON DAYS 1-5, EVERY 3 WEEKS?40MG/M2 FOR AGED }65
     Route: 048

REACTIONS (22)
  - Cardiotoxicity [Fatal]
  - Metastasis [Fatal]
  - Neutropenia [Unknown]
  - Thrombocytopenia [Unknown]
  - Febrile neutropenia [Unknown]
  - Herpes zoster [Unknown]
  - Hepatitis B reactivation [Unknown]
  - Hepatitis acute [Unknown]
  - Ileus [Unknown]
  - White blood cell disorder [Unknown]
  - Aspartate aminotransferase abnormal [Unknown]
  - Alanine aminotransferase abnormal [Unknown]
  - Blood creatinine abnormal [Unknown]
  - Hyponatraemia [Unknown]
  - Hyperglycaemia [Unknown]
  - Myocardial ischaemia [Unknown]
  - Myocardial infarction [Unknown]
  - Left ventricular dysfunction [Unknown]
  - Peripheral sensory neuropathy [Unknown]
  - Peripheral motor neuropathy [Unknown]
  - Hypokalaemia [Unknown]
  - Platelet disorder [Unknown]
